FAERS Safety Report 7376527-X (Version None)
Quarter: 2011Q1

REPORT INFORMATION
  Report Type: 
  Country: None (occurrence: None)
  Receive Date: 20110325
  Receipt Date: 20110305
  Transmission Date: 20110831
  Serious: No
  Sender: FDA-Public Use
  Company Number: US-B.I. PHARMACEUTICALS,INC./RIDGEFIELD-2011-BP-03154BP

PATIENT
  Sex: Female

DRUGS (8)
  1. DIGOXIN [Concomitant]
     Indication: ATRIAL FIBRILLATION
     Dosage: 125 MG
     Route: 048
  2. PRADAXA [Suspect]
     Indication: ATRIAL FIBRILLATION
     Dosage: 300 MG
     Route: 048
     Dates: start: 20101201
  3. HYDROCODONE BITARTRATE [Concomitant]
     Indication: ARTHRALGIA
     Dosage: AS NEEDED
     Route: 048
  4. BISOPROLOL [Concomitant]
     Indication: HYPERTENSION
     Dosage: 5 MG
     Route: 048
  5. FUROSEMIDE [Concomitant]
     Dosage: 20 MG
     Route: 048
  6. LOSARTAN POTASSIUM [Concomitant]
     Indication: HYPERTENSION
     Dosage: 50 MG
     Route: 048
  7. ACYCLOVIR [Concomitant]
     Dosage: 800 MG
     Route: 048
  8. TEMAZEPAM [Concomitant]
     Indication: INSOMNIA
     Dosage: 30 MG
     Route: 048

REACTIONS (9)
  - CARDIAC FLUTTER [None]
  - FREQUENT BOWEL MOVEMENTS [None]
  - DEFAECATION URGENCY [None]
  - DIARRHOEA [None]
  - HEADACHE [None]
  - DIZZINESS [None]
  - ABDOMINAL DISCOMFORT [None]
  - HAEMORRHAGE [None]
  - ABDOMINAL PAIN UPPER [None]
